FAERS Safety Report 7677436-9 (Version None)
Quarter: 2011Q3

REPORT INFORMATION
  Report Type: 
  Country: None (occurrence: None)
  Receive Date: 20110811
  Receipt Date: 20101022
  Transmission Date: 20111222
  Serious: Yes (Other)
  Sender: FDA-Public Use
  Company Number: US-BRISTOL-MYERS SQUIBB COMPANY-15343940

PATIENT
  Age: 5 Decade
  Sex: Male

DRUGS (3)
  1. REYATAZ [Suspect]
  2. TRUVADA [Suspect]
     Dosage: 1DF= 1TAB
  3. RITONAVIR [Suspect]

REACTIONS (3)
  - JAUNDICE [None]
  - CHOLELITHIASIS [None]
  - CHOLESTASIS [None]
